FAERS Safety Report 16170457 (Version 3)
Quarter: 2019Q2

REPORT INFORMATION
  Report Type: Spontaneous
  Country: JP (occurrence: JP)
  Receive Date: 20190408
  Receipt Date: 20190506
  Transmission Date: 20190711
  Serious: Yes (Hospitalization, Other)
  Sender: FDA-Public Use
  Company Number: JP-SA-2019SA094965

PATIENT
  Age: 67 Year
  Sex: Male

DRUGS (4)
  1. EMTRICITABINE [Suspect]
     Active Substance: EMTRICITABINE
     Indication: HIV INFECTION
     Dosage: 200 MG, UNK
  2. TENOFOVIR DISOPROXIL FUMARATE. [Suspect]
     Active Substance: TENOFOVIR DISOPROXIL FUMARATE
     Indication: HIV INFECTION
     Dosage: 300 MG ONCE DAILY AFTER BREAKFAST
  3. ZOLPIDEM TARTRATE. [Suspect]
     Active Substance: ZOLPIDEM TARTRATE
     Dosage: 0.25 MG, QD, BEFORE SLEEP
     Route: 048
  4. EFAVIRENZ. [Suspect]
     Active Substance: EFAVIRENZ
     Indication: HIV INFECTION
     Dosage: 600 MG

REACTIONS (8)
  - Respiratory depression [Recovering/Resolving]
  - Respiratory acidosis [Recovering/Resolving]
  - Loss of personal independence in daily activities [Unknown]
  - Atrophy [Unknown]
  - Respiratory failure [Recovering/Resolving]
  - Hypercapnia [Unknown]
  - Respiratory muscle weakness [Unknown]
  - Altered state of consciousness [Recovering/Resolving]
